FAERS Safety Report 17693353 (Version 1)
Quarter: 2020Q2

REPORT INFORMATION
  Report Type: Spontaneous
  Country: US (occurrence: US)
  Receive Date: 20200422
  Receipt Date: 20200422
  Transmission Date: 20200714
  Serious: Yes (Hospitalization)
  Sender: FDA-Public Use
  Company Number: None

PATIENT
  Age: 50 Year
  Sex: Female

DRUGS (2)
  1. KALYDECO [Suspect]
     Active Substance: IVACAFTOR
     Indication: CYSTIC FIBROSIS
     Route: 048
     Dates: start: 20180920
  2. KALYDECO [Concomitant]
     Active Substance: IVACAFTOR
     Dates: start: 20180920

REACTIONS (2)
  - Therapy interrupted [None]
  - Pneumonia [None]

NARRATIVE: CASE EVENT DATE: 20200409
